FAERS Safety Report 5984231-5 (Version None)
Quarter: 2008Q4

REPORT INFORMATION
  Report Type: 
  Country: None (occurrence: None)
  Receive Date: 20081208
  Receipt Date: 20080925
  Transmission Date: 20090506
  Serious: No
  Sender: FDA-Public Use
  Company Number: US-BRISTOL-MYERS SQUIBB COMPANY-14348866

PATIENT
  Age: 78 Year
  Sex: Female

DRUGS (1)
  1. QUESTRAN LIGHT [Suspect]
     Indication: COLITIS

REACTIONS (1)
  - DRUG INEFFECTIVE [None]
